FAERS Safety Report 8483074-0 (Version None)
Quarter: 2012Q2

REPORT INFORMATION
  Report Type: 
  Country: None (occurrence: None)
  Receive Date: 20120626
  Receipt Date: 20120615
  Transmission Date: 20120825
  Serious: Yes (Other)
  Sender: FDA-Public Use
  Company Number: DSA_58028_2012

PATIENT

DRUGS (4)
  1. FLUOROURACIL [Suspect]
     Indication: NEUROBLASTOMA
     Dosage: (600 MG/M2)
  2. LEUCOVORIN CALCIUM [Suspect]
     Indication: NEUROBLASTOMA
     Dosage: (20 MG/M2)
  3. METHOTREXATE SODIUM [Suspect]
     Indication: NEUROBLASTOMA
     Dosage: (30 MG/M2 (MONTHLY))
  4. CISPLATIN [Suspect]
     Indication: NEUROBLASTOMA
     Dosage: (60 MG/M2 (MONTHLY))

REACTIONS (2)
  - VOMITING [None]
  - NAUSEA [None]
